FAERS Safety Report 24829697 (Version 1)
Quarter: 2025Q1

REPORT INFORMATION
  Report Type: Spontaneous
  Country: GB (occurrence: GB)
  Receive Date: 20250110
  Receipt Date: 20250110
  Transmission Date: 20250409
  Serious: Yes (Other)
  Sender: AUROBINDO
  Company Number: GB-MHRA-TPP38599999C8321366YC1735294697536

PATIENT
  Age: 70 Year
  Sex: Female
  Weight: 84 kg

DRUGS (4)
  1. NITROFURANTOIN [Suspect]
     Active Substance: NITROFURANTOIN
     Indication: Ill-defined disorder
     Dosage: 100 MILLIGRAM, TWO TIMES A DAY (TAKE ONE TWICE DAILY FOR 7 DAYS)
     Route: 065
     Dates: start: 20241123
  2. POLYETHYLENE GLYCOL 3350\POTASSIUM CHLORIDE\SODIUM BICARBONATE\SODIUM [Concomitant]
     Active Substance: POLYETHYLENE GLYCOL 3350\POTASSIUM CHLORIDE\SODIUM BICARBONATE\SODIUM CHLORIDE
     Indication: Ill-defined disorder
     Dosage: 1 DOSAGE FORM, ONCE A DAY (TAKE ONE DAILY)
     Route: 065
     Dates: start: 20240301
  3. GABAPENTIN [Concomitant]
     Active Substance: GABAPENTIN
     Indication: Ill-defined disorder
     Dosage: 1 DOSAGE FORM, 3 TIMES A DAY (TAKE ONE CAPSULE THREE TIMES DAILY)
     Route: 065
     Dates: start: 20240301
  4. SIMVASTATIN [Concomitant]
     Active Substance: SIMVASTATIN
     Indication: Ill-defined disorder
     Dosage: 1 DOSAGE FORM, ONCE A DAY (TAKE ONE AT NIGHT)
     Route: 065
     Dates: start: 20240426

REACTIONS (2)
  - Hypotension [Recovered/Resolved]
  - Asthenia [Unknown]
